FAERS Safety Report 5592538-9 (Version None)
Quarter: 2008Q1

REPORT INFORMATION
  Report Type: 
  Country: None (occurrence: None)
  Receive Date: 20080111
  Receipt Date: 20080102
  Transmission Date: 20080703
  Serious: Yes (Other)
  Sender: FDA-Public Use
  Company Number: WAES 0711ESP00011

PATIENT
  Age: 61 Year
  Sex: Male

DRUGS (5)
  1. INDOCIN [Suspect]
     Indication: BONE DISORDER
     Dosage: 25 MG/Q8H, PO
     Route: 048
     Dates: start: 20070915, end: 20070919
  2. INDOCIN [Suspect]
     Indication: ORAL SURGERY
     Dosage: 25 MG/Q8H, PO
     Route: 048
     Dates: start: 20070915, end: 20070919
  3. TAB DEFLAZACORT [Suspect]
     Indication: BONE DISORDER
     Dosage: 30 MG/DAILY PO
     Route: 048
     Dates: start: 20070915, end: 20070918
  4. TAB DEFLAZACORT [Suspect]
     Indication: ORAL SURGERY
     Dosage: 30 MG/DAILY PO
     Route: 048
     Dates: start: 20070915, end: 20070918
  5. AMOXICILLIN/CLAVULANATE POTSSIUM [Concomitant]

REACTIONS (2)
  - BLOOD PRESSURE SYSTOLIC INCREASED [None]
  - DRUG INTERACTION [None]
